FAERS Safety Report 20897024 (Version 1)
Quarter: 2022Q2

REPORT INFORMATION
  Report Type: Spontaneous
  Country: CO (occurrence: CO)
  Receive Date: 20220531
  Receipt Date: 20220531
  Transmission Date: 20220720
  Serious: Yes (Other)
  Sender: FDA-Public Use
  Company Number: CO-PFIZER INC-202200771778

PATIENT
  Sex: Female

DRUGS (1)
  1. PALBOCICLIB [Suspect]
     Active Substance: PALBOCICLIB
     Indication: Breast cancer
     Dosage: UNK
     Route: 048

REACTIONS (5)
  - Tooth disorder [Unknown]
  - Gingival pain [Unknown]
  - Tooth loss [Unknown]
  - Oral discomfort [Unknown]
  - Injury [Unknown]
